FAERS Safety Report 20176567 (Version 1)
Quarter: 2021Q4

REPORT INFORMATION
  Report Type: Spontaneous
  Country: US (occurrence: None)
  Receive Date: 20211210
  Receipt Date: 20211210
  Transmission Date: 20220303
  Serious: Yes (Hospitalization)
  Sender: FDA-Public Use
  Company Number: None

PATIENT
  Age: 78 Year
  Sex: Female
  Weight: 60.75 kg

DRUGS (7)
  1. STELARA [Suspect]
     Active Substance: USTEKINUMAB
     Indication: Crohn^s disease
     Dosage: OTHER FREQUENCY : EVERY 8 WEEKS;?OTHER ROUTE : SQ;?
     Route: 050
     Dates: start: 20210902, end: 20211102
  2. LISINOPRIL [Concomitant]
     Active Substance: LISINOPRIL
  3. METFORMIN [Concomitant]
     Active Substance: METFORMIN HYDROCHLORIDE
  4. ATENOLOL [Concomitant]
     Active Substance: ATENOLOL
  5. GLIPIZIDE [Concomitant]
     Active Substance: GLIPIZIDE
  6. PIOGLITAZONE [Concomitant]
     Active Substance: PIOGLITAZONE
  7. PRILOSEC [Concomitant]
     Active Substance: OMEPRAZOLE MAGNESIUM

REACTIONS (11)
  - Nervous system disorder [None]
  - Motor dysfunction [None]
  - Executive dysfunction [None]
  - Cognitive disorder [None]
  - Loss of personal independence in daily activities [None]
  - Weight decreased [None]
  - Hypertension [None]
  - Hyperglycaemia [None]
  - Neuralgia [None]
  - Posterior reversible encephalopathy syndrome [None]
  - Hyponatraemia [None]

NARRATIVE: CASE EVENT DATE: 20210914
